FAERS Safety Report 17325621 (Version 1)
Quarter: 2020Q1

REPORT INFORMATION
  Report Type: Spontaneous
  Country: US (occurrence: US)
  Receive Date: 20200127
  Receipt Date: 20200127
  Transmission Date: 20200409
  Serious: No
  Sender: FDA-Public Use
  Company Number: US-REGENERON PHARMACEUTICALS, INC.-2019-29045

PATIENT

DRUGS (3)
  1. EYLEA [Suspect]
     Active Substance: AFLIBERCEPT
     Dosage: OS, Q4W
     Route: 031
     Dates: start: 201902, end: 201902
  2. EYLEA [Suspect]
     Active Substance: AFLIBERCEPT
     Dosage: OS, Q4W, LAST DOSE
     Route: 031
     Dates: start: 20190423, end: 20190423
  3. EYLEA [Suspect]
     Active Substance: AFLIBERCEPT
     Indication: DIABETIC RETINOPATHY
     Dosage: OS, Q4W
     Route: 031
     Dates: start: 2018

REACTIONS (4)
  - Anxiety [Unknown]
  - Eye disorder [Unknown]
  - Vitreous floaters [Unknown]
  - Visual impairment [Unknown]

NARRATIVE: CASE EVENT DATE: 20190423
